FAERS Safety Report 18062359 (Version 2)
Quarter: 2020Q3

REPORT INFORMATION
  Report Type: Report from Study
  Country: BR (occurrence: BR)
  Receive Date: 20200723
  Receipt Date: 20200824
  Transmission Date: 20201103
  Serious: Yes (Other)
  Sender: FDA-Public Use
  Company Number: PHHY2019BR164917

PATIENT
  Age: 44 Year
  Sex: Female
  Weight: 75 kg

DRUGS (9)
  1. COSENTYX [Suspect]
     Active Substance: SECUKINUMAB
     Indication: PSORIATIC ARTHROPATHY
     Dosage: UNK
     Route: 065
     Dates: start: 20190612
  2. ESCITALOPRAM [Concomitant]
     Active Substance: ESCITALOPRAM OXALATE
     Indication: ANXIETY
     Dosage: 1 DF, UNKNOWN
     Route: 048
     Dates: start: 20191121
  3. QUETIAPINE. [Concomitant]
     Active Substance: QUETIAPINE
     Indication: INSOMNIA
  4. ESCITALOPRAM [Concomitant]
     Active Substance: ESCITALOPRAM OXALATE
     Indication: DEPRESSION
  5. QUETIAPINE. [Concomitant]
     Active Substance: QUETIAPINE
     Indication: RESTLESSNESS
  6. QUETIAPINE. [Concomitant]
     Active Substance: QUETIAPINE
     Indication: AGITATION
     Dosage: 1 DF, UNKNOWN
     Route: 048
     Dates: start: 20200514
  7. COSENTYX [Suspect]
     Active Substance: SECUKINUMAB
     Dosage: 300 MG, UNKNOWN
     Route: 065
     Dates: start: 20190703
  8. DULOXETINE. [Concomitant]
     Active Substance: DULOXETINE
     Indication: FIBROMYALGIA
  9. DULOXETINE. [Concomitant]
     Active Substance: DULOXETINE
     Indication: DEPRESSION
     Dosage: 1 DF, UNKNOWN
     Route: 048
     Dates: start: 20170829

REACTIONS (19)
  - Arthralgia [Not Recovered/Not Resolved]
  - Dyspnoea [Not Recovered/Not Resolved]
  - Neck pain [Not Recovered/Not Resolved]
  - Concomitant disease aggravated [Recovered/Resolved]
  - Asthenia [Recovered/Resolved with Sequelae]
  - Malaise [Recovered/Resolved with Sequelae]
  - Musculoskeletal pain [Not Recovered/Not Resolved]
  - Dizziness [Recovered/Resolved]
  - Dyspnoea [Recovered/Resolved]
  - Hypertension [Recovered/Resolved]
  - Dyspnoea [Recovered/Resolved with Sequelae]
  - Headache [Not Recovered/Not Resolved]
  - Pain [Recovered/Resolved with Sequelae]
  - Generalised anxiety disorder [Not Recovered/Not Resolved]
  - Malaise [Recovered/Resolved]
  - Eye irritation [Recovered/Resolved]
  - Nasal discomfort [Recovered/Resolved]
  - Influenza [Recovered/Resolved]
  - Dizziness [Recovered/Resolved with Sequelae]

NARRATIVE: CASE EVENT DATE: 20190703
